FAERS Safety Report 8401568-0 (Version None)
Quarter: 2012Q2

REPORT INFORMATION
  Report Type: 
  Country: None (occurrence: None)
  Receive Date: 20120601
  Receipt Date: 20120530
  Transmission Date: 20120825
  Serious: Yes (Death, Hospitalization, Other)
  Sender: FDA-Public Use
  Company Number: PHHY2012ES046045

PATIENT
  Age: 55 Year
  Sex: Female

DRUGS (3)
  1. CELLCEPT [Interacting]
     Indication: RENAL TRANSPLANT
     Dates: start: 19980504
  2. NEORAL [Interacting]
     Indication: RENAL TRANSPLANT
     Dates: start: 19980504
  3. PREDNISONE TAB [Suspect]
     Indication: RENAL TRANSPLANT
     Dates: start: 19980504

REACTIONS (9)
  - HEADACHE [None]
  - POST TRANSPLANT LYMPHOPROLIFERATIVE DISORDER [None]
  - CENTRAL NERVOUS SYSTEM LYMPHOMA [None]
  - DISEASE PROGRESSION [None]
  - PRECURSOR B-LYMPHOBLASTIC LYMPHOMA REFRACTORY [None]
  - VERTIGO [None]
  - FEBRILE NEUTROPENIA [None]
  - PANCYTOPENIA [None]
  - DRUG INTERACTION [None]
